FAERS Safety Report 24205420 (Version 2)
Quarter: 2024Q3

REPORT INFORMATION
  Report Type: Report from Study
  Country: KR (occurrence: KR)
  Receive Date: 20240813
  Receipt Date: 20240816
  Transmission Date: 20241016
  Serious: Yes (Hospitalization, Other)
  Sender: DAIICHI
  Company Number: KR-DSJP-DSJ-2024-139799

PATIENT
  Age: 56 Year
  Sex: Female
  Weight: 50 kg

DRUGS (11)
  1. ENHERTU [Suspect]
     Active Substance: FAM-TRASTUZUMAB DERUXTECAN-NXKI
     Indication: HER2 positive breast cancer
     Dosage: 5.4 MG/KG (TOTAL ADMINISTERED DOSE: 273 MG)
     Route: 042
     Dates: start: 20240424, end: 20240424
  2. ENHERTU [Suspect]
     Active Substance: FAM-TRASTUZUMAB DERUXTECAN-NXKI
     Dosage: 5.4 MG/KG (TOTAL ADMINISTERED DOSE: 273 MG)
     Route: 042
     Dates: start: 20240520, end: 20240520
  3. CALCIUM CARBONATE\CHOLECALCIFEROL [Concomitant]
     Active Substance: CALCIUM CARBONATE\CHOLECALCIFEROL
     Indication: Osteoporosis prophylaxis
     Dosage: 1 DF, QD
     Route: 048
     Dates: start: 20231212
  4. FEROBA YOU SR [Concomitant]
     Indication: Anaemia
     Dosage: 1 DF, BID
     Route: 048
     Dates: start: 20230215
  5. LEVOPLUS [LEVOFLOXACIN] [Concomitant]
     Indication: Pneumonia
     Dosage: 1 DF, QD
     Route: 048
     Dates: start: 20240424, end: 20240425
  6. LEVOFLOXACIN [Concomitant]
     Active Substance: LEVOFLOXACIN
     Indication: Pneumonia
     Dosage: 750 MG, QD
     Route: 042
     Dates: start: 20240425, end: 20240501
  7. K CAB [Concomitant]
     Indication: Prophylaxis against gastrointestinal ulcer
     Dosage: 1 DF, QD
     Route: 048
     Dates: start: 20240401
  8. NEOMEDICOUGH [Concomitant]
     Indication: Cough
     Dosage: 1 DF, TID
     Route: 048
     Dates: start: 20240415
  9. PHENIL [CHLORPHENAMINE MALEATE] [Concomitant]
     Indication: Transfusion reaction
     Dosage: 4 MG, QD
     Route: 042
     Dates: start: 20240502, end: 20240502
  10. PHENIL [CHLORPHENAMINE MALEATE] [Concomitant]
     Indication: Prophylaxis
  11. AKYNZEO (NETUPITANT\PALONOSETRON HYDROCHLORIDE) [Concomitant]
     Active Substance: NETUPITANT\PALONOSETRON HYDROCHLORIDE
     Indication: Prophylaxis of nausea and vomiting
     Dosage: 1 DF, QD
     Route: 048
     Dates: start: 20240424, end: 20240424

REACTIONS (1)
  - Pancytopenia [Recovered/Resolved]

NARRATIVE: CASE EVENT DATE: 20240502
